FAERS Safety Report 21755497 (Version 2)
Quarter: 2022Q4

REPORT INFORMATION
  Report Type: Spontaneous
  Country: FR (occurrence: FR)
  Receive Date: 20221220
  Receipt Date: 20221223
  Transmission Date: 20230112
  Serious: Yes (Other)
  Sender: FDA-Public Use
  Company Number: FR-TEVA-2022-FR-2837279

PATIENT
  Age: 33 Year
  Sex: Female

DRUGS (2)
  1. COPAXONE [Suspect]
     Active Substance: GLATIRAMER ACETATE
     Indication: Multiple sclerosis
     Route: 065
     Dates: start: 2008
  2. COPAXONE [Suspect]
     Active Substance: GLATIRAMER ACETATE
     Dosage: COPAXONE 40 MG/ML
     Route: 058

REACTIONS (11)
  - Desmoid tumour [Unknown]
  - Multiple sclerosis relapse [Recovering/Resolving]
  - COVID-19 [Unknown]
  - Urinary tract disorder [Not Recovered/Not Resolved]
  - Limb discomfort [Recovering/Resolving]
  - Neck pain [Recovering/Resolving]
  - Pain in extremity [Recovering/Resolving]
  - Paraesthesia [Recovering/Resolving]
  - Therapeutic product effect decreased [Unknown]
  - Electric shock sensation [Recovering/Resolving]
  - Fatigue [Recovering/Resolving]

NARRATIVE: CASE EVENT DATE: 20200301
